FAERS Safety Report 18076398 (Version 1)
Quarter: 2020Q3

REPORT INFORMATION
  Report Type: Spontaneous
  Country: US (occurrence: US)
  Receive Date: 20200727
  Receipt Date: 20200727
  Transmission Date: 20201103
  Serious: No
  Sender: FDA-Public Use
  Company Number: US-ABBVIE-20K-163-3492813-00

PATIENT
  Age: 67 Year
  Sex: Female

DRUGS (5)
  1. SYNTHROID [Suspect]
     Active Substance: LEVOTHYROXINE SODIUM
     Route: 048
  2. SYNTHROID [Suspect]
     Active Substance: LEVOTHYROXINE SODIUM
     Indication: PRODUCT USED FOR UNKNOWN INDICATION
     Route: 048
     Dates: start: 1980
  3. SYNTHROID [Suspect]
     Active Substance: LEVOTHYROXINE SODIUM
     Route: 048
  4. SYNTHROID [Suspect]
     Active Substance: LEVOTHYROXINE SODIUM
     Dosage: DECREASED WITH SYNTHROID 88 AT 176 MCG
     Route: 048
     Dates: start: 2020
  5. LIOTHYRONINE [Concomitant]
     Active Substance: LIOTHYRONINE
     Indication: PRODUCT USED FOR UNKNOWN INDICATION
     Dates: start: 202001

REACTIONS (6)
  - Tri-iodothyronine abnormal [Unknown]
  - Abdominal distension [Unknown]
  - Blood thyroid stimulating hormone abnormal [Unknown]
  - Tri-iodothyronine decreased [Unknown]
  - Blood thyroid stimulating hormone decreased [Unknown]
  - Thyroxine abnormal [Unknown]

NARRATIVE: CASE EVENT DATE: 2020
